FAERS Safety Report 15600264 (Version 3)
Quarter: 2020Q1

REPORT INFORMATION
  Report Type: Spontaneous
  Country: US (occurrence: US)
  Receive Date: 20181109
  Receipt Date: 20200224
  Transmission Date: 20200409
  Serious: Yes (Hospitalization, Other)
  Sender: FDA-Public Use
  Company Number: US-JNJFOC-20181100706

PATIENT
  Sex: Female

DRUGS (3)
  1. OFEV [Suspect]
     Active Substance: NINTEDANIB
     Indication: IDIOPATHIC PULMONARY FIBROSIS
     Dosage: 300 MG (150  MG, - 2)
     Route: 048
     Dates: start: 20170306
  2. OFEV [Suspect]
     Active Substance: NINTEDANIB
     Route: 048
  3. ZYRTEC [Suspect]
     Active Substance: CETIRIZINE HYDROCHLORIDE
     Indication: PRODUCT USED FOR UNKNOWN INDICATION
     Route: 065

REACTIONS (44)
  - Dyspnoea exertional [Unknown]
  - Dizziness [Unknown]
  - Muscle strain [Unknown]
  - Paranasal sinus discomfort [Unknown]
  - Sinus congestion [Unknown]
  - Feeling abnormal [Unknown]
  - Cough [Unknown]
  - Seasonal allergy [Unknown]
  - Anxiety [Unknown]
  - Tooth repair [Unknown]
  - Cataract [Unknown]
  - Headache [Unknown]
  - Spinal fracture [Unknown]
  - Diarrhoea [Recovered/Resolved]
  - Gastrooesophageal reflux disease [Unknown]
  - Onychomycosis [Unknown]
  - Sinus headache [Unknown]
  - Rhinorrhoea [Unknown]
  - Eye disorder [Unknown]
  - Nausea [Recovered/Resolved]
  - Osteoporosis [Unknown]
  - Productive cough [Unknown]
  - Sneezing [Unknown]
  - Oxygen therapy [Unknown]
  - Multiple allergies [Unknown]
  - Pain [Unknown]
  - Pain in extremity [Unknown]
  - Constipation [Unknown]
  - Dyspnoea [Unknown]
  - Diplopia [Unknown]
  - Hypersensitivity [Unknown]
  - Back pain [Unknown]
  - Vomiting [Unknown]
  - Vision blurred [Unknown]
  - Heart rate increased [Unknown]
  - Asthenia [Unknown]
  - Limb discomfort [Unknown]
  - Transient ischaemic attack [Unknown]
  - Compression fracture [Unknown]
  - Respiratory tract congestion [Unknown]
  - Hypoaesthesia [Unknown]
  - Fatigue [Unknown]
  - Insomnia [Unknown]
  - Discomfort [Unknown]
